FAERS Safety Report 4360640-5 (Version None)
Quarter: 2004Q2

REPORT INFORMATION
  Report Type: 
  Country: None (occurrence: None)
  Receive Date: 20040518
  Receipt Date: 20040518
  Transmission Date: 20050107
  Serious: No
  Sender: FDA-Public Use
  Company Number: None

PATIENT
  Age: 86 Year
  Sex: Female
  Weight: 45 kg

DRUGS (11)
  1. NAFCILLIN SODIUM [Suspect]
     Indication: CELLULITIS
     Dosage: 2 GM Q4H INTRAVENOUS
     Route: 042
     Dates: start: 20040223, end: 20040224
  2. NITROGLYCERINE OINTMENT [Concomitant]
  3. GABAPENTIN [Concomitant]
  4. ENALAPRIL MALEATE [Concomitant]
  5. KCL TAB [Concomitant]
  6. ASPIRIN [Concomitant]
  7. ALBUTEROL/IPRATROPIUM [Concomitant]
  8. METOPROLOL [Concomitant]
  9. FUROSEMIDE [Concomitant]
  10. CEFTRIAXONE [Concomitant]
  11. AZITHROMYCIN [Concomitant]

REACTIONS (3)
  - HAEMODIALYSIS [None]
  - NEPHRITIS INTERSTITIAL [None]
  - RENAL FAILURE ACUTE [None]
